FAERS Safety Report 9334619 (Version 1)
Quarter: 2013Q2

REPORT INFORMATION
  Report Type: Spontaneous
  Country: US (occurrence: US)
  Receive Date: 20130606
  Receipt Date: 20130606
  Transmission Date: 20140414
  Serious: No
  Sender: FDA-Public Use
  Company Number: US-AMGEN-USASP2013009415

PATIENT
  Age: 72 Year
  Sex: Female
  Weight: 68.03 kg

DRUGS (4)
  1. PROLIA [Suspect]
     Indication: OSTEOPOROSIS POSTMENOPAUSAL
     Dosage: 60 MG, Q6MO
     Route: 058
     Dates: start: 201212
  2. PAXIL                              /00500401/ [Concomitant]
     Dosage: UNK
  3. CRESTOR [Concomitant]
     Dosage: UNK
  4. OXYBUTYNIN [Concomitant]
     Dosage: UNK

REACTIONS (4)
  - Myalgia [Recovering/Resolving]
  - Arthralgia [Recovering/Resolving]
  - Musculoskeletal pain [Not Recovered/Not Resolved]
  - Pain in extremity [Not Recovered/Not Resolved]
